FAERS Safety Report 12421883 (Version 1)
Quarter: 2016Q2

REPORT INFORMATION
  Report Type: Spontaneous
  Country: DE (occurrence: DE)
  Receive Date: 20160531
  Receipt Date: 20160531
  Transmission Date: 20160815
  Serious: Yes (Hospitalization)
  Sender: FDA-Public Use
  Company Number: DE-PFIZER INC-2016273578

PATIENT
  Age: 81 Year
  Sex: Female

DRUGS (2)
  1. VENLAFAXINE HCL [Suspect]
     Active Substance: VENLAFAXINE HYDROCHLORIDE
     Dosage: 37.5 MG, 1X/DAY
     Route: 048
     Dates: start: 20151102, end: 20151130
  2. MIRTAZAPIN [Concomitant]
     Active Substance: MIRTAZAPINE
     Dosage: 45 MG, 1X/DAY
     Route: 048

REACTIONS (1)
  - Haematoma [Recovered/Resolved]

NARRATIVE: CASE EVENT DATE: 20151109
